FAERS Safety Report 8533044-9 (Version None)
Quarter: 2012Q3

REPORT INFORMATION
  Report Type: 
  Country: None (occurrence: None)
  Receive Date: 20120724
  Receipt Date: 20120713
  Transmission Date: 20120928
  Serious: Yes (Other)
  Sender: FDA-Public Use
  Company Number: JP-VERTEX PHARMACEUTICALS INC.-AE-2012-001078

PATIENT
  Age: 57 Year
  Sex: Female

DRUGS (23)
  1. TELAVIC (TELAPREVIR) [Suspect]
     Route: 048
     Dates: start: 20120120, end: 20120318
  2. PEG-INTRON [Concomitant]
     Route: 058
     Dates: start: 20120220
  3. REBETOL [Concomitant]
     Route: 048
     Dates: start: 20120213, end: 20120318
  4. LIVALO [Concomitant]
     Route: 048
  5. CLARITIN REDITABS [Concomitant]
     Route: 048
  6. REBETOL [Concomitant]
     Indication: HEPATITIS C
     Route: 048
     Dates: start: 20120111, end: 20120205
  7. LIVALO [Concomitant]
     Route: 048
     Dates: start: 20120206, end: 20120325
  8. EPADEL S [Concomitant]
     Route: 048
     Dates: end: 20120325
  9. TELAVIC (TELAPREVIR) [Suspect]
     Indication: HEPATITIS C
     Route: 048
     Dates: start: 20120111, end: 20120113
  10. PEG-INTRON [Concomitant]
     Route: 058
     Dates: end: 20120319
  11. PEG-INTRON [Concomitant]
     Route: 058
     Dates: start: 20120402, end: 20120625
  12. REBETOL [Concomitant]
     Route: 048
     Dates: start: 20120416, end: 20120521
  13. REBETOL [Concomitant]
     Route: 048
     Dates: start: 20120528, end: 20120625
  14. FEROTYM [Concomitant]
     Route: 048
  15. EPADEL [Concomitant]
     Route: 048
  16. REBETOL [Concomitant]
     Route: 048
     Dates: start: 20120206, end: 20120212
  17. ETIZOLAM [Concomitant]
     Route: 048
  18. DEPAS [Concomitant]
     Route: 048
  19. NIZATIDINE [Concomitant]
     Route: 048
     Dates: start: 20120227
  20. ZOLPIDEM [Concomitant]
     Route: 048
  21. PEG-INTRON [Concomitant]
     Indication: HEPATITIS C
     Route: 058
     Dates: start: 20120111, end: 20120213
  22. REBETOL [Concomitant]
     Route: 048
     Dates: start: 20120522, end: 20120527
  23. LIVALO [Concomitant]
     Route: 048
     Dates: end: 20120113

REACTIONS (3)
  - ANAEMIA [None]
  - PLATELET COUNT DECREASED [None]
  - RENAL DISORDER [None]
